FAERS Safety Report 21681842 (Version 1)
Quarter: 2022Q4

REPORT INFORMATION
  Report Type: Spontaneous
  Country: US (occurrence: None)
  Receive Date: 20221205
  Receipt Date: 20221205
  Transmission Date: 20230113
  Serious: No
  Sender: FDA-Public Use
  Company Number: 2022A370520

PATIENT
  Age: 30309 Day
  Sex: Female
  Weight: 77.9 kg

DRUGS (1)
  1. LOKELMA [Suspect]
     Active Substance: SODIUM ZIRCONIUM CYCLOSILICATE
     Indication: Hyperkalaemia
     Route: 048
     Dates: start: 20221101, end: 20221108

REACTIONS (2)
  - Wound [Not Recovered/Not Resolved]
  - Cutaneous symptom [Not Recovered/Not Resolved]

NARRATIVE: CASE EVENT DATE: 20221107
